FAERS Safety Report 15171049 (Version 2)
Quarter: 2018Q4

REPORT INFORMATION
  Report Type: Report from Study
  Country: None (occurrence: HU)
  Receive Date: 20180720
  Receipt Date: 20181225
  Transmission Date: 20190204
  Serious: Yes (Hospitalization)
  Sender: FDA-Public Use
  Company Number: HU-ABBVIE-18K-076-2322624-00

PATIENT
  Sex: Male

DRUGS (2)
  1. DUODOPA [Suspect]
     Active Substance: CARBIDOPA\LEVODOPA
     Indication: PRODUCT USED FOR UNKNOWN INDICATION
     Dosage: MORNING DOSE 4.0ML; CONTINUOUS DOSE 3.9ML/H;EXTRA DOSE 0.8ML
     Route: 050
     Dates: start: 20170202
  2. XANAX [Concomitant]
     Active Substance: ALPRAZOLAM
     Indication: PRODUCT USED FOR UNKNOWN INDICATION
     Dosage: 0.5MG AT 2PM; 0.5MG AT 5PM; 0.25MG AT 8PM; 0.25MG ATH 10PM
     Route: 048

REACTIONS (8)
  - Neurodegenerative disorder [Unknown]
  - Impulse-control disorder [Recovering/Resolving]
  - Speech disorder [Unknown]
  - Gambling disorder [Recovering/Resolving]
  - Disorientation [Recovered/Resolved]
  - Oral discomfort [Unknown]
  - Sensory disturbance [Not Recovered/Not Resolved]
  - Freezing phenomenon [Unknown]

NARRATIVE: CASE EVENT DATE: 2017
